FAERS Safety Report 20765211 (Version 2)
Quarter: 2022Q2

REPORT INFORMATION
  Report Type: Spontaneous
  Country: US (occurrence: US)
  Receive Date: 20220428
  Receipt Date: 20220509
  Transmission Date: 20220721
  Serious: Yes (Other)
  Sender: FDA-Public Use
  Company Number: US-TEVA-2022-US-2030208

PATIENT
  Age: 20 Year
  Sex: Female

DRUGS (7)
  1. PREDNISONE [Suspect]
     Active Substance: PREDNISONE
     Indication: Myasthenia gravis
     Dosage: 50 MILLIGRAM DAILY; SINCE DIAGNOSIS TO WEEK 32 POST-DIAGNOSIS
     Route: 065
     Dates: start: 2016
  2. PREDNISONE [Suspect]
     Active Substance: PREDNISONE
     Dosage: 30 MILLIGRAM DAILY; FROM WEEK 32 TO 48 WEEK POST-DIAGNOSIS, AFTER WHICH IT WAS TAPERED BY 5 MG EVERY
     Route: 065
     Dates: end: 201908
  3. MESTINON [Suspect]
     Active Substance: PYRIDOSTIGMINE BROMIDE
     Indication: Myasthenia gravis
     Dosage: THREE TIMES A DAY; SINCE DIAGNOSIS TO WEEK 48 POST-DIAGNOSIS, AFTER WHICH IT WAS TAPERED BY 60 MG...
     Route: 065
     Dates: start: 2016
  4. CELLCEPT [Suspect]
     Active Substance: MYCOPHENOLATE MOFETIL
     Indication: Myasthenia gravis
     Dosage: 2000 MILLIGRAM DAILY;
     Route: 065
  5. HUMAN IMMUNOGLOBULIN G [Suspect]
     Active Substance: HUMAN IMMUNOGLOBULIN G
     Indication: Myasthenia gravis
     Dosage: DOSE: 1G/KG BODY WEIGHT EVERY 4 WEEKS FROM WEEK 8 TO WEEK 16 POST DIAGNOSIS
     Route: 042
  6. HUMAN IMMUNOGLOBULIN G [Suspect]
     Active Substance: HUMAN IMMUNOGLOBULIN G
     Dosage: DOSE: 1G/KG BODY WEIGHT EVERY 3 WEEKS FROM WEEK 16 TO WEEK 24 POST DIAGNOSIS
     Route: 042
  7. ECULIZUMAB [Suspect]
     Active Substance: ECULIZUMAB
     Indication: Myasthenia gravis
     Route: 050
     Dates: start: 201811, end: 201908

REACTIONS (8)
  - Weight increased [Unknown]
  - Osteoporosis [Unknown]
  - Glucose tolerance impaired [Unknown]
  - Abdominal pain [Unknown]
  - Nausea [Unknown]
  - Pulmonary embolism [Unknown]
  - Deep vein thrombosis [Unknown]
  - Headache [Unknown]
